FAERS Safety Report 11844114 (Version 1)
Quarter: 2015Q4

REPORT INFORMATION
  Report Type: Spontaneous
  Country: None (occurrence: US)
  Receive Date: 20151217
  Receipt Date: 20151217
  Transmission Date: 20160305
  Serious: No
  Sender: FDA-Public Use
  Company Number: US-IROKO PHARMACEUTICALS LLC-IND1-US-2009-0003

PATIENT
  Sex: Male

DRUGS (2)
  1. INDOMETHACIN AMBIGUOUS [Suspect]
     Active Substance: INDOMETHACIN
  2. COLCHICINE. [Concomitant]
     Active Substance: COLCHICINE
     Indication: GOUTY ARTHRITIS

REACTIONS (1)
  - Adverse reaction [None]
